FAERS Safety Report 20061196 (Version 4)
Quarter: 2022Q1

REPORT INFORMATION
  Report Type: Spontaneous
  Country: US (occurrence: US)
  Receive Date: 20211112
  Receipt Date: 20220205
  Transmission Date: 20220423
  Serious: Yes (Other)
  Sender: FDA-Public Use
  Company Number: US-CELLTRION INC.-2021US015148

PATIENT

DRUGS (3)
  1. INFLECTRA [Suspect]
     Active Substance: INFLIXIMAB-DYYB
     Indication: Crohn^s disease
     Dosage: 600MG, EVERY 6 WEEKS
     Route: 065
     Dates: start: 20210909, end: 20210909
  2. METOPROLOL SUCCINATE [Concomitant]
     Active Substance: METOPROLOL SUCCINATE
     Indication: Cardiac disorder
     Dosage: 12.5 MG, AS NEEDED
  3. ARMOUR THYROID [Concomitant]
     Active Substance: THYROID, PORCINE
     Indication: Thyroid disorder
     Dosage: 80 MG A DAY

REACTIONS (19)
  - Hypertension [Unknown]
  - Headache [Recovering/Resolving]
  - Blood pressure increased [Recovering/Resolving]
  - Feeling abnormal [Unknown]
  - Abdominal rigidity [Unknown]
  - Eye pain [Unknown]
  - Muscle spasms [Unknown]
  - Diarrhoea [Unknown]
  - Heart rate increased [Recovering/Resolving]
  - Visual impairment [Unknown]
  - Insomnia [Unknown]
  - Cardiac disorder [Unknown]
  - Dyspnoea [Unknown]
  - Abdominal pain [Unknown]
  - Gastrointestinal disorder [Unknown]
  - Abdominal pain upper [Unknown]
  - Prescribed overdose [Unknown]
  - Off label use [Unknown]
  - Product substitution issue [Unknown]

NARRATIVE: CASE EVENT DATE: 20210101
